FAERS Safety Report 19253903 (Version 1)
Quarter: 2021Q2

REPORT INFORMATION
  Report Type: Spontaneous
  Country: US (occurrence: US)
  Receive Date: 20210513
  Receipt Date: 20210513
  Transmission Date: 20210717
  Serious: No
  Sender: FDA-Public Use
  Company Number: None

PATIENT
  Age: 80 Year
  Sex: Female
  Weight: 68.36 kg

DRUGS (16)
  1. CALCIUM [Concomitant]
     Active Substance: CALCIUM
  2. ASPRIN [Concomitant]
     Active Substance: ASPIRIN
  3. HYDROCHLOROTHIAZED [Concomitant]
  4. ROSUVASTATIN. [Concomitant]
     Active Substance: ROSUVASTATIN
  5. ALTACE [Concomitant]
     Active Substance: RAMIPRIL
  6. ELIGARD [Concomitant]
     Active Substance: LEUPROLIDE ACETATE
  7. PANTOPRAZOLE [Concomitant]
     Active Substance: PANTOPRAZOLE
  8. LUPRON [Concomitant]
     Active Substance: LEUPROLIDE ACETATE
  9. PROLIA [Concomitant]
     Active Substance: DENOSUMAB
  10. VITAMIN D3 [Concomitant]
     Active Substance: CHOLECALCIFEROL
  11. NORVASC [Concomitant]
     Active Substance: AMLODIPINE BESYLATE
  12. FLUOCINONIDE. [Concomitant]
     Active Substance: FLUOCINONIDE
  13. ABIRATERONE. [Suspect]
     Active Substance: ABIRATERONE ACETATE
     Indication: PROSTATE CANCER
     Route: 048
     Dates: start: 20210319, end: 20210513
  14. PREDNISONE. [Suspect]
     Active Substance: PREDNISONE
     Indication: PROSTATE CANCER
     Route: 048
     Dates: start: 20210319
  15. CARDURA [Concomitant]
     Active Substance: DOXAZOSIN MESYLATE
  16. POTASSIUM [Concomitant]
     Active Substance: POTASSIUM

REACTIONS (1)
  - Prostatic specific antigen increased [None]

NARRATIVE: CASE EVENT DATE: 20210513
